FAERS Safety Report 5204149-5 (Version None)
Quarter: 2007Q1

REPORT INFORMATION
  Report Type: 
  Country: None (occurrence: None)
  Receive Date: 20070110
  Receipt Date: 20051219
  Transmission Date: 20070707
  Serious: No
  Sender: FDA-Public Use
  Company Number: US-BRISTOL-MYERS SQUIBB COMPANY-13221338

PATIENT
  Sex: Female
  Weight: 59 kg

DRUGS (4)
  1. ABILIFY [Suspect]
     Indication: SCHIZOPHRENIA
     Route: 048
  2. PROGESTERONE [Concomitant]
  3. ESTROGENS SOL/INJ [Concomitant]
  4. CLOMID [Concomitant]

REACTIONS (1)
  - PREGNANCY [None]
